FAERS Safety Report 18444514 (Version 1)
Quarter: 2020Q4

REPORT INFORMATION
  Report Type: Spontaneous
  Country: US (occurrence: US)
  Receive Date: 20201030
  Receipt Date: 20201030
  Transmission Date: 20210114
  Serious: No
  Sender: FDA-Public Use
  Company Number: US-JNJFOC-20201040084

PATIENT
  Age: 31 Year
  Sex: Male
  Weight: 104.42 kg

DRUGS (1)
  1. MENS ROGAINE EXTRA STRENGTH [Suspect]
     Active Substance: MINOXIDIL
     Indication: ALOPECIA
     Dosage: DATE OF LAST ADMINISTRATION: 21-OCT-2020
     Route: 061
     Dates: start: 202009

REACTIONS (3)
  - Inappropriate schedule of product administration [Unknown]
  - Hair growth abnormal [Not Recovered/Not Resolved]
  - Underdose [Unknown]

NARRATIVE: CASE EVENT DATE: 202009
